FAERS Safety Report 7236638-6 (Version None)
Quarter: 2011Q1

REPORT INFORMATION
  Report Type: 
  Country: None (occurrence: None)
  Receive Date: 20110120
  Receipt Date: 20110104
  Transmission Date: 20110831
  Serious: No
  Sender: FDA-Public Use
  Company Number: US-B.I. PHARMACEUTICALS,INC./RIDGEFIELD-2011-BP-00540BP

PATIENT
  Sex: Female

DRUGS (4)
  1. HYDROCHLOROTHIAZIDE [Concomitant]
     Indication: HYPERTENSION
     Dosage: 25 MG
     Route: 048
     Dates: start: 20090101
  2. AGGRENOX [Suspect]
     Dosage: 50MG/400MG
     Route: 048
     Dates: start: 20100501
  3. VERAPAMIL [Suspect]
     Indication: HYPERTENSION
     Dosage: 120 MG
     Route: 048
     Dates: start: 20100501
  4. ENALAPRIL [Concomitant]
     Indication: HYPERTENSION
     Dosage: 10 MG
     Route: 048
     Dates: start: 20100501, end: 20101201

REACTIONS (2)
  - FEELING COLD [None]
  - HYPERHIDROSIS [None]
